FAERS Safety Report 12428296 (Version 1)
Quarter: 2016Q2

REPORT INFORMATION
  Report Type: Spontaneous
  Country: GB (occurrence: GB)
  Receive Date: 20160602
  Receipt Date: 20160602
  Transmission Date: 20160815
  Serious: Yes (Other)
  Sender: FDA-Public Use
  Company Number: GB-GLAXOSMITHKLINE-GB2016076470

PATIENT
  Age: 68 Year
  Sex: Male
  Weight: 120.65 kg

DRUGS (1)
  1. SERETIDE [Suspect]
     Active Substance: FLUTICASONE PROPIONATE\SALMETEROL XINAFOATE
     Indication: CHRONIC OBSTRUCTIVE PULMONARY DISEASE
     Dosage: 1 DF, BID (MORNING AND NIGHT)
     Route: 055
     Dates: start: 20140604

REACTIONS (5)
  - Abnormal weight gain [Recovering/Resolving]
  - Aggression [Recovering/Resolving]
  - Chest pain [Recovering/Resolving]
  - Depression [Recovering/Resolving]
  - Musculoskeletal chest pain [Recovering/Resolving]

NARRATIVE: CASE EVENT DATE: 20160205
